FAERS Safety Report 15595742 (Version 4)
Quarter: 2019Q1

REPORT INFORMATION
  Report Type: Spontaneous
  Country: US (occurrence: US)
  Receive Date: 20181107
  Receipt Date: 20190320
  Transmission Date: 20190417
  Serious: No
  Sender: FDA-Public Use
  Company Number: US-BRISTOL-MYERS SQUIBB COMPANY-BMS-2018-103928

PATIENT
  Sex: Female

DRUGS (1)
  1. ORENCIA [Suspect]
     Active Substance: ABATACEPT
     Indication: RHEUMATOID ARTHRITIS
     Dosage: 125 MG, QWK
     Route: 058
     Dates: start: 201808

REACTIONS (7)
  - Nasopharyngitis [Unknown]
  - Malaise [Unknown]
  - Sneezing [Unknown]
  - Cough [Unknown]
  - Product dose omission [Unknown]
  - Influenza [Unknown]
  - Rhinorrhoea [Unknown]
